FAERS Safety Report 8171925-9 (Version None)
Quarter: 2012Q1

REPORT INFORMATION
  Report Type: 
  Country: None (occurrence: None)
  Receive Date: 20120228
  Receipt Date: 20120217
  Transmission Date: 20120608
  Serious: Yes (Death, Hospitalization, Other)
  Sender: FDA-Public Use
  Company Number: US-CELGENEUS-163-21880-12011426

PATIENT
  Sex: Female

DRUGS (22)
  1. COUMADIN [Concomitant]
     Dosage: 2.5-5 MG
     Route: 048
  2. COLESTID [Concomitant]
     Dosage: 1 GRAM
     Route: 048
  3. REVLIMID [Suspect]
     Indication: MULTIPLE MYELOMA
     Dosage: 15 MILLIGRAM
     Route: 048
     Dates: start: 20110309, end: 20111228
  4. MULTI-VITAMINS [Concomitant]
     Route: 065
  5. DEXAMETHASONE [Concomitant]
     Dosage: 20
     Route: 065
  6. NITROGLYCERIN [Concomitant]
     Dosage: .4 MILLIGRAM
     Route: 060
  7. ACETAMINOPHEN [Concomitant]
     Dosage: 500 MILLIGRAM
     Route: 065
  8. VITAMIN B-12 [Concomitant]
     Route: 065
  9. DEXAMETHASONE [Concomitant]
     Route: 065
     Dates: start: 20100201, end: 20101201
  10. LOVENOX [Concomitant]
     Route: 065
  11. BACTRIM [Suspect]
     Dosage: 1 TABLET
     Route: 048
  12. TRAMADOL HCL [Concomitant]
     Indication: PAIN
     Dosage: 50
     Route: 065
  13. FLORINEF [Concomitant]
     Dosage: .05 MILLIGRAM
     Route: 048
  14. REMERON [Concomitant]
     Dosage: 30 MILLIGRAM
     Route: 048
  15. NEXIUM [Concomitant]
     Dosage: 20 MILLIGRAM
     Route: 065
  16. NEURONTIN [Concomitant]
     Dosage: 300MG - 600MG
     Route: 048
  17. GABAPENTIN [Concomitant]
     Dosage: 600
     Route: 065
  18. FLOVENT [Concomitant]
     Route: 065
  19. VALTREX [Concomitant]
     Dosage: 500 MILLIGRAM
     Route: 048
  20. COLESTIPOL HYDROCHLORIDE [Concomitant]
     Route: 065
  21. ASPIRIN [Concomitant]
     Dosage: 81 MILLIGRAM
     Route: 065
  22. FRESH FROZEN PLASMA [Concomitant]
     Dosage: 2 IU (INTERNATIONAL UNIT)
     Route: 065

REACTIONS (15)
  - BRONCHITIS [None]
  - DEEP VEIN THROMBOSIS [None]
  - POLLAKIURIA [None]
  - PALLOR [None]
  - EPISTAXIS [None]
  - DIZZINESS [None]
  - PNEUMONIA [None]
  - NEUTROPENIC SEPSIS [None]
  - PULMONARY EMBOLISM [None]
  - KIDNEY INFECTION [None]
  - DRUG DOSE OMISSION [None]
  - INTERNATIONAL NORMALISED RATIO INCREASED [None]
  - HALLUCINATION [None]
  - ASTHENIA [None]
  - PANCYTOPENIA [None]
